FAERS Safety Report 7775307-0 (Version None)
Quarter: 2011Q3

REPORT INFORMATION
  Report Type: 
  Country: None (occurrence: None)
  Receive Date: 20110923
  Receipt Date: 20110916
  Transmission Date: 20111222
  Serious: Yes (Hospitalization, Other)
  Sender: FDA-Public Use
  Company Number: GB-PFIZER INC-2011221337

PATIENT
  Age: 43 Year
  Sex: Male

DRUGS (2)
  1. IBUPROFEN [Suspect]
     Route: 065
  2. DEPAKOTE [Suspect]
     Indication: EPILEPSY

REACTIONS (6)
  - OVERDOSE [None]
  - HYPERNATRAEMIA [None]
  - HYPOCALCAEMIA [None]
  - THROMBOCYTOPENIA [None]
  - METABOLIC ACIDOSIS [None]
  - HYPERAMMONAEMIC ENCEPHALOPATHY [None]
